FAERS Safety Report 9556356 (Version 1)
Quarter: 2013Q3

REPORT INFORMATION
  Report Type: Spontaneous
  Country: US (occurrence: None)
  Receive Date: 20130815
  Receipt Date: 20130815
  Transmission Date: 20140515
  Serious: Yes (Other)
  Sender: FDA-Public Use
  Company Number: ADR-2012-01947

PATIENT
  Sex: Male

DRUGS (5)
  1. BACLOFEN INTRATHECAL [Suspect]
     Indication: PAIN
  2. BACLOFEN INTRATHECAL [Suspect]
     Indication: COMPLEX REGIONAL PAIN SYNDROME
  3. HYDROMORPHONE [Concomitant]
  4. BUPIVACAINE [Concomitant]
  5. CLONIDINE [Concomitant]

REACTIONS (3)
  - Muscle spasms [None]
  - Gait disturbance [None]
  - Back pain [None]
